FAERS Safety Report 7303300-0 (Version None)
Quarter: 2011Q1

REPORT INFORMATION
  Report Type: 
  Country: None (occurrence: None)
  Receive Date: 20110221
  Receipt Date: 20110207
  Transmission Date: 20110831
  Serious: Yes (Hospitalization, Other)
  Sender: FDA-Public Use
  Company Number: US-RANBAXY-2011US-41644

PATIENT
  Age: 47 Year
  Sex: Female

DRUGS (1)
  1. VERAPAMIL [Suspect]
     Indication: PRODUCT USED FOR UNKNOWN INDICATION
     Dosage: 7.2 G; 30 TABLETS OF 240 MG SUSTAINED RELEASE
     Route: 065

REACTIONS (3)
  - ISCHAEMIC STROKE [None]
  - SUICIDAL IDEATION [None]
  - OVERDOSE [None]
